FAERS Safety Report 14110146 (Version 1)
Quarter: 2017Q4

REPORT INFORMATION
  Report Type: Report from Study
  Country: None (occurrence: US)
  Receive Date: 20171020
  Receipt Date: 20171020
  Transmission Date: 20180321
  Serious: Yes (Life-Threatening, Hospitalization, Disabling, Other)
  Sender: FDA-Public Use
  Company Number: US-ABBVIE-17K-163-2136113-00

PATIENT
  Sex: Female
  Weight: 74.91 kg

DRUGS (9)
  1. METHOTREXATE. [Concomitant]
     Active Substance: METHOTREXATE
     Dates: start: 2017
  2. HUMIRA [Suspect]
     Active Substance: ADALIMUMAB
     Indication: PSORIASIS
     Route: 058
     Dates: start: 2017, end: 201705
  3. HUMIRA [Suspect]
     Active Substance: ADALIMUMAB
     Indication: PSORIATIC ARTHROPATHY
  4. TEGRETOL [Concomitant]
     Active Substance: CARBAMAZEPINE
     Indication: SEIZURE
  5. WARFARIN [Concomitant]
     Active Substance: WARFARIN
     Indication: PRODUCT USED FOR UNKNOWN INDICATION
  6. FOLIC ACID. [Concomitant]
     Active Substance: FOLIC ACID
     Indication: PRODUCT USED FOR UNKNOWN INDICATION
  7. HUMIRA [Suspect]
     Active Substance: ADALIMUMAB
     Indication: OSTEOARTHRITIS
  8. METHOTREXATE. [Concomitant]
     Active Substance: METHOTREXATE
     Indication: PRODUCT USED FOR UNKNOWN INDICATION
     Dates: end: 201705
  9. VENTOLIN [Concomitant]
     Active Substance: ALBUTEROL SULFATE
     Indication: ASTHMA

REACTIONS (19)
  - Traumatic liver injury [Recovered/Resolved]
  - Hypertension [Recovered/Resolved]
  - Pneumonia [Recovered/Resolved]
  - Cartilage atrophy [Not Recovered/Not Resolved]
  - Pneumothorax [Recovered/Resolved]
  - Memory impairment [Not Recovered/Not Resolved]
  - Breath sounds abnormal [Unknown]
  - Inflammatory marker increased [Unknown]
  - Off label use [Not Recovered/Not Resolved]
  - Cardiac murmur [Recovered/Resolved]
  - Gait inability [Recovering/Resolving]
  - Confusional state [Unknown]
  - Heart valve incompetence [Recovered/Resolved]
  - Internal haemorrhage [Recovered/Resolved]
  - Cardiac valve disease [Recovered/Resolved]
  - Post procedural complication [Unknown]
  - Medical induction of coma [Recovered/Resolved]
  - Cardiac arrest [Recovered/Resolved]
  - Nasopharyngitis [Recovered/Resolved]

NARRATIVE: CASE EVENT DATE: 2017
